FAERS Safety Report 26045977 (Version 1)
Quarter: 2025Q4

REPORT INFORMATION
  Report Type: Spontaneous
  Country: AU (occurrence: AU)
  Receive Date: 20251114
  Receipt Date: 20251114
  Transmission Date: 20260118
  Serious: Yes (Other)
  Sender: RANBAXY
  Company Number: AU-SUN PHARMACEUTICAL INDUSTRIES LTD-2025R1-536141

PATIENT
  Age: 48 Year
  Sex: Female

DRUGS (7)
  1. LENALIDOMIDE [Suspect]
     Active Substance: LENALIDOMIDE
     Indication: Plasma cell myeloma
     Dosage: 10 MILLIGRAM,INTERVAL: 1 DAY
     Route: 048
     Dates: start: 20241113, end: 20241210
  2. LENALIDOMIDE [Suspect]
     Active Substance: LENALIDOMIDE
     Dosage: 10 MILLIGRAM,INTERVAL: 1 DAY
     Route: 048
     Dates: start: 20250619, end: 20250623
  3. ASPIRIN [Concomitant]
     Active Substance: ASPIRIN
     Indication: Prophylaxis
     Dosage: 100 MILLIGRAM, INTERVAL: 1 DAY
     Route: 048
     Dates: start: 20241113
  4. FILGRASTIM [Concomitant]
     Active Substance: FILGRASTIM
     Indication: Neutropenia
     Dosage: 300 MICROGRAM, INTERVAL: 1 WEEK
     Route: 058
     Dates: start: 20250401
  5. MAGNESIUM [Concomitant]
     Active Substance: MAGNESIUM
     Indication: Bursitis
     Dosage: 500 MILLIGRAM, INTERVAL: 1 DAY
     Route: 048
     Dates: start: 20241207
  6. PREGABALIN [Concomitant]
     Active Substance: PREGABALIN
     Indication: Bursitis
     Dosage: 75 MILLIGRAM
     Route: 048
     Dates: start: 20241113
  7. VITAMIN D3 [Concomitant]
     Active Substance: CHOLECALCIFEROL
     Indication: Prophylaxis
     Dosage: 0.25 MILLILITER INTERVAL: 1 DAY
     Route: 048
     Dates: start: 2024

REACTIONS (2)
  - Pyrexia [Not Recovered/Not Resolved]
  - COVID-19 [Recovered/Resolved]

NARRATIVE: CASE EVENT DATE: 20250708
